FAERS Safety Report 6649659-9 (Version None)
Quarter: 2010Q1

REPORT INFORMATION
  Report Type: 
  Country: None (occurrence: None)
  Receive Date: 20100324
  Receipt Date: 20090318
  Transmission Date: 20100710
  Serious: No
  Sender: FDA-Public Use
  Company Number: US-AMGEN-KDL339068

PATIENT
  Sex: Female

DRUGS (6)
  1. NEULASTA [Suspect]
     Indication: CHEMOTHERAPY
     Dates: start: 20090318
  2. LEVOTHYROXINE SODIUM [Concomitant]
  3. DEXAMETHASONE [Concomitant]
  4. TAXOTERE [Concomitant]
  5. CYTOXAN [Concomitant]
  6. XANAX [Concomitant]

REACTIONS (2)
  - BACK PAIN [None]
  - PAIN IN EXTREMITY [None]
